FAERS Safety Report 21437156 (Version 9)
Quarter: 2025Q1

REPORT INFORMATION
  Report Type: Report from Study
  Country: US (occurrence: US)
  Receive Date: 20221010
  Receipt Date: 20250303
  Transmission Date: 20250408
  Serious: Yes (Death, Hospitalization, Other)
  Sender: TAKEDA
  Company Number: US-TAKEDA-2022TUS052102

PATIENT
  Age: 78 Year
  Sex: Female

DRUGS (35)
  1. PONATINIB [Suspect]
     Active Substance: PONATINIB
     Indication: Chronic myeloid leukaemia
     Dosage: 45 MILLIGRAM, QD
  2. PONATINIB [Suspect]
     Active Substance: PONATINIB
     Dosage: 30 MILLIGRAM, QD
     Dates: start: 20220901
  3. PONATINIB [Suspect]
     Active Substance: PONATINIB
     Dosage: 45 MILLIGRAM, QD
  4. PONATINIB [Suspect]
     Active Substance: PONATINIB
     Dosage: 45 MILLIGRAM, QD
  5. PONATINIB [Suspect]
     Active Substance: PONATINIB
     Dosage: 30 MILLIGRAM, QD
  6. PONATINIB [Suspect]
     Active Substance: PONATINIB
     Dosage: 30 MILLIGRAM, QD
  7. PONATINIB [Suspect]
     Active Substance: PONATINIB
     Dosage: 30 MILLIGRAM, QD
  8. LEVOTHYROXINE SODIUM [Concomitant]
     Active Substance: LEVOTHYROXINE SODIUM
  9. FAMOTIDINE [Concomitant]
     Active Substance: FAMOTIDINE
  10. YUVAFEM [Concomitant]
     Active Substance: ESTRADIOL HEMIHYDRATE
  11. OLMESARTAN MEDOXOMIL [Concomitant]
     Active Substance: OLMESARTAN MEDOXOMIL
  12. ALBUTEROL SULFATE [Concomitant]
     Active Substance: ALBUTEROL SULFATE
  13. ASPIRIN [Concomitant]
     Active Substance: ASPIRIN
  14. VITAMIN D3 [Concomitant]
     Active Substance: CHOLECALCIFEROL
  15. Glucosamine + chondroitin [Concomitant]
  16. ACYCLOVIR [Concomitant]
     Active Substance: ACYCLOVIR
  17. FLUCONAZOLE [Concomitant]
     Active Substance: FLUCONAZOLE
  18. CEPHALEXIN [Concomitant]
     Active Substance: CEPHALEXIN
  19. AMOXICILLIN [Concomitant]
     Active Substance: AMOXICILLIN
  20. VIDAZA [Concomitant]
     Active Substance: AZACITIDINE
  21. VENCLEXTA [Concomitant]
     Active Substance: VENETOCLAX
  22. ASPIRIN [Concomitant]
     Active Substance: ASPIRIN
  23. ALLOPURINOL [Concomitant]
     Active Substance: ALLOPURINOL
  24. CEFPODOXIME PROXETIL [Concomitant]
     Active Substance: CEFPODOXIME PROXETIL
  25. ATOVAQUONE [Concomitant]
     Active Substance: ATOVAQUONE
  26. SPIRONOLACTONE [Concomitant]
     Active Substance: SPIRONOLACTONE
  27. PREDNISONE [Concomitant]
     Active Substance: PREDNISONE
  28. MAGNESIUM OXIDE [Concomitant]
     Active Substance: MAGNESIUM OXIDE
  29. OMEPRAZOLE [Concomitant]
     Active Substance: OMEPRAZOLE
  30. TACROLIMUS [Concomitant]
     Active Substance: TACROLIMUS
  31. TORSEMIDE [Concomitant]
     Active Substance: TORSEMIDE
  32. TIBSOVO [Concomitant]
     Active Substance: IVOSIDENIB
  33. AZITHROMYCIN [Concomitant]
     Active Substance: AZITHROMYCIN
  34. MONTELUKAST SODIUM [Concomitant]
     Active Substance: MONTELUKAST SODIUM
  35. BUDESONIDE\FORMOTEROL FUMARATE [Concomitant]
     Active Substance: BUDESONIDE\FORMOTEROL FUMARATE

REACTIONS (21)
  - Death [Fatal]
  - White blood cell count abnormal [Unknown]
  - Infection [Unknown]
  - Polycythaemia vera [Unknown]
  - Red blood cell count decreased [Unknown]
  - Full blood count decreased [Unknown]
  - Blood sodium decreased [Unknown]
  - Neutrophil count decreased [Unknown]
  - Product availability issue [Unknown]
  - Acne [Unknown]
  - Abdominal discomfort [Unknown]
  - Gastrooesophageal reflux disease [Unknown]
  - Alopecia [Unknown]
  - White blood cell count decreased [Unknown]
  - Vision blurred [Unknown]
  - Auditory disorder [Unknown]
  - Product dose omission issue [Unknown]
  - Product use issue [Unknown]
  - Vitreous floaters [Unknown]
  - Drug ineffective [Unknown]
  - Pain [Unknown]

NARRATIVE: CASE EVENT DATE: 20250226
